FAERS Safety Report 20250874 (Version 1)
Quarter: 2021Q4

REPORT INFORMATION
  Report Type: Spontaneous
  Country: US (occurrence: US)
  Receive Date: 20211229
  Receipt Date: 20211229
  Transmission Date: 20220303
  Serious: Yes (Other)
  Sender: FDA-Public Use
  Company Number: US-COOPERSURGICAL, INC.-US-2020CPS003170

PATIENT
  Age: 42 Year
  Sex: Female
  Weight: 88.435 kg

DRUGS (1)
  1. PARAGARD T 380A [Suspect]
     Active Substance: COPPER
     Indication: Contraception
     Dosage: UNK
     Route: 015
     Dates: start: 201004

REACTIONS (6)
  - Foreign body in reproductive tract [Not Recovered/Not Resolved]
  - Device material issue [Recovered/Resolved]
  - Device colour issue [Not Recovered/Not Resolved]
  - Abdominal pain [Unknown]
  - Abnormal uterine bleeding [Unknown]
  - Device use issue [Recovered/Resolved]

NARRATIVE: CASE EVENT DATE: 20201001
